FAERS Safety Report 14118826 (Version 1)
Quarter: 2017Q4

REPORT INFORMATION
  Report Type: Spontaneous
  Country: CA (occurrence: CA)
  Receive Date: 20171024
  Receipt Date: 20171024
  Transmission Date: 20180321
  Serious: Yes (Other)
  Sender: FDA-Public Use
  Company Number: CA-ROCHE-1993745

PATIENT
  Sex: Male

DRUGS (13)
  1. RITUXAN [Suspect]
     Active Substance: RITUXIMAB
     Indication: VASCULITIS
     Dosage: FREQUENCY: DAY 1, 15, ON HOLD?RECENT RITUXIMAB DOSE: 30/MAR/2017
     Route: 042
     Dates: start: 20170315
  2. ACETAMINOPHEN. [Concomitant]
     Active Substance: ACETAMINOPHEN
     Indication: PREMEDICATION
     Route: 048
     Dates: start: 20170315
  3. DIPHENHYDRAMINE. [Concomitant]
     Active Substance: DIPHENHYDRAMINE
     Indication: PREMEDICATION
     Route: 048
     Dates: start: 20170315
  4. AMLODIPINE [Concomitant]
     Active Substance: AMLODIPINE BESYLATE
  5. TUMS [Concomitant]
     Active Substance: CALCIUM CARBONATE
  6. PREDNISONE. [Concomitant]
     Active Substance: PREDNISONE
  7. EZETROL [Concomitant]
     Active Substance: EZETIMIBE
  8. ATOVAQUONE. [Concomitant]
     Active Substance: ATOVAQUONE
     Route: 065
  9. GLICLAZIDE [Concomitant]
     Active Substance: GLICLAZIDE
  10. LASIX [Concomitant]
     Active Substance: FUROSEMIDE
     Route: 065
  11. WARFARIN [Concomitant]
     Active Substance: WARFARIN
  12. METHYLPREDNISOLONE. [Concomitant]
     Active Substance: METHYLPREDNISOLONE
     Indication: PREMEDICATION
     Route: 042
     Dates: start: 20170315
  13. PANTO (CANADA) [Concomitant]

REACTIONS (2)
  - Blood pressure increased [Unknown]
  - Nephrolithiasis [Not Recovered/Not Resolved]
